FAERS Safety Report 13747141 (Version 3)
Quarter: 2017Q3

REPORT INFORMATION
  Report Type: Report from Study
  Country: US (occurrence: US)
  Receive Date: 20170712
  Receipt Date: 20170816
  Transmission Date: 20171127
  Serious: Yes (Hospitalization, Other)
  Sender: FDA-Public Use
  Company Number: US-JNJFOC-20170706663

PATIENT
  Age: 86 Year
  Sex: Female

DRUGS (16)
  1. IPRATROPIUM [Concomitant]
     Active Substance: IPRATROPIUM
  2. ASMANEX [Concomitant]
     Active Substance: MOMETASONE FUROATE
  3. LEVALBUTEROL. [Concomitant]
     Active Substance: LEVALBUTEROL
  4. IMBRUVICA [Suspect]
     Active Substance: IBRUTINIB
     Indication: CHRONIC LYMPHOCYTIC LEUKAEMIA
     Route: 048
     Dates: start: 20170513, end: 201706
  5. NORVASC [Concomitant]
     Active Substance: AMLODIPINE BESYLATE
  6. GABAPENTIN. [Concomitant]
     Active Substance: GABAPENTIN
  7. TOPROL XL [Concomitant]
     Active Substance: METOPROLOL SUCCINATE
  8. LASIX [Concomitant]
     Active Substance: FUROSEMIDE
  9. NITROFURANTOIN. [Concomitant]
     Active Substance: NITROFURANTOIN
  10. ATORVASTATIN [Concomitant]
     Active Substance: ATORVASTATIN
  11. FLUTICASONE. [Concomitant]
     Active Substance: FLUTICASONE
  12. OXYCODONE [Concomitant]
     Active Substance: OXYCODONE
  13. ZOCOR [Concomitant]
     Active Substance: SIMVASTATIN
  14. LOSARTAN. [Concomitant]
     Active Substance: LOSARTAN
  15. POTASSIUM [Concomitant]
     Active Substance: POTASSIUM
  16. PRILOSEC [Concomitant]
     Active Substance: OMEPRAZOLE MAGNESIUM

REACTIONS (2)
  - Cerebral haemorrhage [Not Recovered/Not Resolved]
  - Cerebrovascular accident [Unknown]

NARRATIVE: CASE EVENT DATE: 201706
